FAERS Safety Report 6822606-2 (Version None)
Quarter: 2010Q3

REPORT INFORMATION
  Report Type: 
  Country: None (occurrence: None)
  Receive Date: 20100708
  Receipt Date: 20100625
  Transmission Date: 20110219
  Serious: Yes (Death)
  Sender: FDA-Public Use
  Company Number: GB-ELI_LILLY_AND_COMPANY-GB201003002283

PATIENT
  Sex: Male

DRUGS (3)
  1. ZYPREXA [Suspect]
     Indication: DEPRESSION
     Dosage: 2.5 MG, UNK
     Route: 048
     Dates: start: 20091118
  2. CIPRAMIL [Concomitant]
     Indication: DEPRESSION
     Dosage: 40 G, UNK
     Route: 048
     Dates: start: 20090608
  3. MIRTAZAPINE [Concomitant]
     Indication: DEPRESSION
     Dosage: 15 G, UNK
     Route: 048
     Dates: start: 20090710

REACTIONS (4)
  - COMPLETED SUICIDE [None]
  - DROWNING [None]
  - OFF LABEL USE [None]
  - STRESS [None]
